FAERS Safety Report 5304433-0 (Version None)
Quarter: 2007Q2

REPORT INFORMATION
  Report Type: 
  Country: None (occurrence: None)
  Receive Date: 20070423
  Receipt Date: 20070412
  Transmission Date: 20071010
  Serious: Yes (Hospitalization)
  Sender: FDA-Public Use
  Company Number: US-BRISTOL-MYERS SQUIBB COMPANY-13752902

PATIENT
  Age: 74 Year
  Sex: Male

DRUGS (7)
  1. PRINZIDE [Suspect]
     Route: 048
  2. WARFARIN [Suspect]
     Indication: ATRIAL FIBRILLATION
     Dosage: 2.5 MG DAILY; 5 MG WEEKLY
     Route: 048
  3. COUMADIN [Concomitant]
  4. CYTOMEL [Concomitant]
  5. LORTAB [Concomitant]
  6. NEURONTIN [Concomitant]
  7. PROPRANOLOL HYDROCHLORIDE [Concomitant]

REACTIONS (8)
  - ARTHRALGIA [None]
  - BACK PAIN [None]
  - EPISTAXIS [None]
  - FALL [None]
  - HAEMORRHAGE [None]
  - INJURY [None]
  - INTERNATIONAL NORMALISED RATIO INCREASED [None]
  - PAIN IN EXTREMITY [None]
